FAERS Safety Report 25656907 (Version 1)
Quarter: 2025Q3

REPORT INFORMATION
  Report Type: Spontaneous
  Country: JP (occurrence: JP)
  Receive Date: 20250807
  Receipt Date: 20250807
  Transmission Date: 20251021
  Serious: Yes (Other)
  Sender: SANOFI AVENTIS
  Company Number: JP-SA-2025SA229269

PATIENT

DRUGS (1)
  1. DUPIXENT [Suspect]
     Active Substance: DUPILUMAB
     Indication: Product used for unknown indication
     Route: 058

REACTIONS (5)
  - Eosinophilic granulomatosis with polyangiitis [Unknown]
  - Gait inability [Unknown]
  - Fall [Unknown]
  - Fracture [Unknown]
  - Eosinophil count increased [Unknown]
